FAERS Safety Report 23397655 (Version 1)
Quarter: 2024Q1

REPORT INFORMATION
  Report Type: Spontaneous
  Country: US (occurrence: None)
  Receive Date: 20240111
  Receipt Date: 20240111
  Transmission Date: 20240409
  Serious: Yes (Hospitalization)
  Sender: FDA-Public Use
  Company Number: None

PATIENT
  Age: 5 Month
  Sex: Female
  Weight: 2.72 kg

DRUGS (1)
  1. NIRSEVIMAB [Suspect]
     Active Substance: NIRSEVIMAB
     Indication: Antiviral prophylaxis
     Dosage: 0.5 ML INTRAMUSCULAR
     Route: 030
     Dates: start: 20231216, end: 20231216

REACTIONS (1)
  - Respiratory syncytial virus test positive [None]

NARRATIVE: CASE EVENT DATE: 20231227
